FAERS Safety Report 5335061-9 (Version None)
Quarter: 2007Q2

REPORT INFORMATION
  Report Type: 
  Country: None (occurrence: None)
  Receive Date: 20070525
  Receipt Date: 20070524
  Transmission Date: 20071010
  Serious: No
  Sender: FDA-Public Use
  Company Number: PT-BRISTOL-MYERS SQUIBB COMPANY-13675277

PATIENT
  Sex: Male

DRUGS (1)
  1. FOSITEN [Suspect]
     Indication: HYPERTENSION
     Route: 048

REACTIONS (1)
  - HEPATIC ENZYME INCREASED [None]
